FAERS Safety Report 10557751 (Version 1)
Quarter: 2014Q4

REPORT INFORMATION
  Report Type: Spontaneous
  Country: GB (occurrence: GB)
  Receive Date: 20141031
  Receipt Date: 20141031
  Transmission Date: 20150529
  Serious: Yes (Hospitalization)
  Sender: FDA-Public Use
  Company Number: PHHY2014GB140533

PATIENT
  Age: 66 Year
  Sex: Male

DRUGS (1)
  1. AZITHROMYCIN [Suspect]
     Active Substance: AZITHROMYCIN ANHYDROUS
     Indication: ASPERGILLOMA
     Dosage: 250 MG, QW3
     Route: 048

REACTIONS (2)
  - Dyspnoea [Unknown]
  - Electrocardiogram QT prolonged [Unknown]
